FAERS Safety Report 23784590 (Version 1)
Quarter: 2024Q2

REPORT INFORMATION
  Report Type: Other
  Country: US (occurrence: US)
  Receive Date: 20240425
  Receipt Date: 20240425
  Transmission Date: 20240716
  Serious: Yes (Hospitalization)
  Sender: FDA-Public Use
  Company Number: US-SIGA Technologies, Inc.-2156049

PATIENT
  Age: 2 Month

DRUGS (3)
  1. TPOXX [Suspect]
     Active Substance: TECOVIRIMAT
     Indication: Monkeypox
     Route: 048
  2. Vaccinia Immune Globulin Intravenous [Concomitant]
     Route: 042
  3. TRIFLURIDINE [Concomitant]
     Active Substance: TRIFLURIDINE
     Route: 047

REACTIONS (1)
  - Product use issue [Recovered/Resolved]
